FAERS Safety Report 19039009 (Version 1)
Quarter: 2021Q1

REPORT INFORMATION
  Report Type: Spontaneous
  Country: US (occurrence: US)
  Receive Date: 20210322
  Receipt Date: 20210322
  Transmission Date: 20210420
  Serious: Yes (Other)
  Sender: FDA-Public Use
  Company Number: US-GLAXOSMITHKLINE-US2021GSK066594

PATIENT
  Sex: Female

DRUGS (2)
  1. ZANTAC [Suspect]
     Active Substance: RANITIDINE HYDROCHLORIDE
     Indication: MECHANICAL URTICARIA
     Dosage: 300 MG, QD
     Route: 065
     Dates: start: 201506, end: 201912
  2. ZANTAC [Suspect]
     Active Substance: RANITIDINE HYDROCHLORIDE
     Indication: MECHANICAL URTICARIA
     Dosage: 300 MG, QD
     Route: 065
     Dates: start: 201506, end: 201912

REACTIONS (1)
  - Breast cancer [Unknown]
